FAERS Safety Report 4333196-0 (Version None)
Quarter: 2004Q2

REPORT INFORMATION
  Report Type: 
  Country: None (occurrence: None)
  Receive Date: 20040402
  Receipt Date: 20040317
  Transmission Date: 20050107
  Serious: Yes (Death)
  Sender: FDA-Public Use
  Company Number: F01200400622

PATIENT

DRUGS (5)
  1. PLAVIX [Suspect]
     Indication: CEREBROVASCULAR ACCIDENT
     Route: 048
     Dates: start: 19990401
  2. PLAVIX [Suspect]
     Indication: TRANSIENT ISCHAEMIC ATTACK
     Route: 048
     Dates: start: 19990401
  3. ACETYLSALICYLIC ACID SRT [Concomitant]
  4. BETA BLOCKER [Concomitant]
  5. ORAL HYPOGLCAEMIC OR ANTI-HYPERGLYCAEMIC [Concomitant]

REACTIONS (1)
  - DEATH [None]
